FAERS Safety Report 8181819-0 (Version None)
Quarter: 2012Q1

REPORT INFORMATION
  Report Type: 
  Country: None (occurrence: None)
  Receive Date: 20120302
  Receipt Date: 20120229
  Transmission Date: 20120608
  Serious: Yes (Disabling, Other)
  Sender: FDA-Public Use
  Company Number: US-PFIZER INC-2012055172

PATIENT
  Sex: Female

DRUGS (5)
  1. CHANTIX [Suspect]
     Dosage: UNK, (STARTER PACK)
     Route: 048
  2. CHANTIX [Suspect]
     Dosage: 1 MG, 2X/DAY (CONTINUOUS PACK)
     Route: 048
  3. PERCOCET [Concomitant]
     Dosage: UNK
  4. SYNTHROID [Concomitant]
     Dosage: UNK
  5. GABAPENTIN [Concomitant]
     Dosage: UNK

REACTIONS (1)
  - SPINAL FUSION SURGERY [None]
